FAERS Safety Report 21411288 (Version 1)
Quarter: 2022Q4

REPORT INFORMATION
  Report Type: Spontaneous
  Country: US (occurrence: US)
  Receive Date: 20221005
  Receipt Date: 20221005
  Transmission Date: 20230113
  Serious: Yes (Hospitalization, Other)
  Sender: FDA-Public Use
  Company Number: US-009507513-1504USA023213

PATIENT
  Sex: Female

DRUGS (3)
  1. FOSAMAX [Suspect]
     Active Substance: ALENDRONATE SODIUM
     Indication: Osteoporosis
     Dosage: UNK
     Route: 048
     Dates: start: 199509
  2. FOSAMAX [Suspect]
     Active Substance: ALENDRONATE SODIUM
     Indication: Osteoporosis
     Dosage: 70 MG, QW
     Route: 048
     Dates: end: 200911
  3. ALENDRONATE SODIUM [Suspect]
     Active Substance: ALENDRONATE SODIUM
     Indication: Osteoporosis
     Dosage: 70 MG, QW
     Route: 048
     Dates: start: 200912, end: 201112

REACTIONS (34)
  - Patella fracture [Unknown]
  - Patella fracture [Unknown]
  - Femur fracture [Unknown]
  - Fall [Unknown]
  - Spinal compression fracture [Unknown]
  - Spinal compression fracture [Unknown]
  - Spinal compression fracture [Recovering/Resolving]
  - Hip fracture [Unknown]
  - Upper limb fracture [Unknown]
  - Spinal operation [Unknown]
  - Shoulder arthroplasty [Unknown]
  - Wrist fracture [Unknown]
  - Cataract [Unknown]
  - Appendicectomy [Unknown]
  - Rheumatoid arthritis [Recovering/Resolving]
  - Fall [Unknown]
  - Balance disorder [Unknown]
  - Thrombosis [Unknown]
  - Fall [Unknown]
  - Osteoporosis [Unknown]
  - Lung hyperinflation [Unknown]
  - Spinal osteoarthritis [Unknown]
  - Blood cholesterol increased [Unknown]
  - Bunion operation [Unknown]
  - Bunion operation [Unknown]
  - Tonsillectomy [Unknown]
  - Medical device removal [Unknown]
  - Medical device removal [Unknown]
  - Impaired healing [Unknown]
  - Arthritis [Unknown]
  - Full blood count abnormal [Unknown]
  - Intervertebral disc degeneration [Unknown]
  - Renal cyst [Unknown]
  - Back pain [Recovered/Resolved]

NARRATIVE: CASE EVENT DATE: 20050101
